FAERS Safety Report 5733455-0 (Version None)
Quarter: 2008Q2

REPORT INFORMATION
  Report Type: 
  Country: None (occurrence: None)
  Receive Date: 20080509
  Receipt Date: 20080430
  Transmission Date: 20081010
  Serious: Yes (Hospitalization, Other)
  Sender: FDA-Public Use
  Company Number: US-ABBOTT-08P-163-0447251-00

PATIENT
  Sex: Female
  Weight: 96.248 kg

DRUGS (3)
  1. HUMIRA [Suspect]
     Indication: CROHN'S DISEASE
     Route: 058
     Dates: start: 20070901, end: 20080301
  2. HUMIRA [Suspect]
     Route: 058
     Dates: start: 20070401, end: 20070901
  3. AZATHIOPRINE [Concomitant]
     Indication: RHEUMATOID ARTHRITIS

REACTIONS (4)
  - ABDOMINAL PAIN [None]
  - CROHN'S DISEASE [None]
  - HODGKIN'S DISEASE NODULAR SCLEROSIS STAGE III [None]
  - HODGKIN'S DISEASE RECURRENT [None]
